FAERS Safety Report 4667043-4 (Version None)
Quarter: 2005Q2

REPORT INFORMATION
  Report Type: 
  Country: None (occurrence: None)
  Receive Date: 20050520
  Receipt Date: 20041115
  Transmission Date: 20051028
  Serious: Yes (Other)
  Sender: FDA-Public Use
  Company Number: PHEH2004US12305

PATIENT
  Age: 62 Year
  Sex: Female

DRUGS (3)
  1. AREDIA [Suspect]
     Indication: METASTASES TO BONE
     Dosage: 90 MG, Q4 WEEKS
     Dates: start: 19991111, end: 20030826
  2. ZOLEDRONATE [Suspect]
     Indication: METASTASES TO BONE
     Dosage: 4MG, Q4 WEEKS
     Dates: start: 20030922, end: 20041025
  3. VINORELBINE TARTRATE [Concomitant]

REACTIONS (6)
  - INFECTION [None]
  - ORAL DISCOMFORT [None]
  - OSTEONECROSIS [None]
  - PRIMARY SEQUESTRUM [None]
  - SEQUESTRECTOMY [None]
  - TOOTH EXTRACTION [None]
